FAERS Safety Report 10248807 (Version 1)
Quarter: 2014Q2

REPORT INFORMATION
  Report Type: Report from Study
  Country: CN (occurrence: CN)
  Receive Date: 20140620
  Receipt Date: 20140620
  Transmission Date: 20141212
  Serious: Yes (Hospitalization)
  Sender: FDA-Public Use
  Company Number: CN-ROCHE-1419163

PATIENT
  Age: 52 Year
  Sex: Female
  Weight: 65 kg

DRUGS (5)
  1. CELLCEPT [Suspect]
     Indication: RENAL TRANSPLANT
     Route: 048
     Dates: start: 20050106
  2. CICLOSPORIN [Suspect]
     Indication: RENAL TRANSPLANT
     Route: 048
     Dates: start: 20050106, end: 2012
  3. TACROLIMUS [Suspect]
     Indication: RENAL TRANSPLANT
     Dosage: 1.5MG IN THE MORNING AND 2.5MG IN THE EVENING
     Route: 048
     Dates: start: 2012, end: 2014
  4. TACROLIMUS [Suspect]
     Route: 048
     Dates: start: 2014
  5. PREDNISONE [Concomitant]
     Indication: RENAL TRANSPLANT
     Route: 048
     Dates: start: 20050106

REACTIONS (9)
  - Dental caries [Recovering/Resolving]
  - Pulpitis dental [Recovered/Resolved]
  - Proteinuria [Recovering/Resolving]
  - Diarrhoea [Not Recovered/Not Resolved]
  - Gingival hyperplasia [Recovering/Resolving]
  - Hair growth abnormal [Recovering/Resolving]
  - Blood creatinine increased [Recovering/Resolving]
  - Immunosuppressant drug level increased [Recovered/Resolved]
  - Breast mass [Not Recovered/Not Resolved]
